FAERS Safety Report 12354123 (Version 1)
Quarter: 2016Q2

REPORT INFORMATION
  Report Type: Spontaneous
  Country: IT (occurrence: IT)
  Receive Date: 20160511
  Receipt Date: 20160511
  Transmission Date: 20160815
  Serious: Yes (Other)
  Sender: FDA-Public Use
  Company Number: IT-ACCORD-040339

PATIENT
  Age: 73 Year
  Sex: Female

DRUGS (8)
  1. GLUCOBAY [Concomitant]
     Active Substance: ACARBOSE
     Dosage: STRENGTH:50 MG
  2. BISOPROLOL [Concomitant]
     Active Substance: BISOPROLOL
  3. SOLOSA [Concomitant]
     Active Substance: GLIMEPIRIDE
     Dosage: STRENGTH: 2 MG
  4. MINITRAN [Concomitant]
     Active Substance: NITROGLYCERIN
     Dosage: STRENGTH:10 MG/24 H
  5. GEMCITABINE ACCORD [Suspect]
     Active Substance: GEMCITABINE HYDROCHLORIDE
     Indication: TRANSITIONAL CELL CANCER OF THE RENAL PELVIS AND URETER
     Dosage: STRENGTH: 100 MG/ML
     Route: 042
     Dates: start: 20160405
  6. CARBOPLATIN ACCORD [Suspect]
     Active Substance: CARBOPLATIN
     Indication: URETERIC CANCER
     Dosage: STRENGTH: 10 MG/ML
     Route: 042
     Dates: start: 20160405, end: 20160405
  7. METFORAL [Concomitant]
     Active Substance: METFORMIN HYDROCHLORIDE
     Dosage: STRENGTH: 500 MG
  8. CARDIRENE [Concomitant]
     Active Substance: ASPIRIN DL-LYSINE
     Dosage: STRENGTH: 160 MG

REACTIONS (5)
  - Off label use [Unknown]
  - Hypertensive crisis [Recovered/Resolved]
  - Presyncope [Recovered/Resolved]
  - Dyspnoea [Recovered/Resolved]
  - Throat tightness [Recovered/Resolved]

NARRATIVE: CASE EVENT DATE: 20160405
